FAERS Safety Report 7921387-9 (Version None)
Quarter: 2011Q4

REPORT INFORMATION
  Report Type: 
  Country: None (occurrence: None)
  Receive Date: 20111117
  Receipt Date: 20111111
  Transmission Date: 20120403
  Serious: Yes (Hospitalization)
  Sender: FDA-Public Use
  Company Number: IT-ABBOTT-11P-083-0873550-00

PATIENT
  Sex: Male

DRUGS (6)
  1. EN [Suspect]
     Indication: SUICIDE ATTEMPT
     Dosage: TOTAL
     Route: 048
     Dates: start: 20111102, end: 20111102
  2. SINGULAIR [Concomitant]
     Indication: PRODUCT USED FOR UNKNOWN INDICATION
  3. DEPAKENE [Suspect]
     Indication: PRODUCT USED FOR UNKNOWN INDICATION
     Dosage: TOTAL
     Route: 048
     Dates: start: 20111102, end: 20111102
  4. FORMODUAL [Concomitant]
     Indication: PRODUCT USED FOR UNKNOWN INDICATION
  5. AIRCORT [Concomitant]
     Indication: ASTHMA
  6. RAMIPRIL [Concomitant]
     Indication: HYPERTENSION

REACTIONS (2)
  - TOXICITY TO VARIOUS AGENTS [None]
  - COMA [None]
